FAERS Safety Report 11840264 (Version 1)
Quarter: 2015Q4

REPORT INFORMATION
  Report Type: Spontaneous
  Country: US (occurrence: US)
  Receive Date: 20151216
  Receipt Date: 20151216
  Transmission Date: 20160305
  Serious: Yes (Hospitalization)
  Sender: FDA-Public Use
  Company Number: US-WEST-WARD PHARMACEUTICALS CORP.-US-H14001-15-02107

PATIENT
  Age: 38 Year
  Sex: Female

DRUGS (1)
  1. HEPARIN [Suspect]
     Active Substance: HEPARIN SODIUM
     Indication: DEEP VEIN THROMBOSIS
     Route: 042

REACTIONS (4)
  - Locked-in syndrome [Recovering/Resolving]
  - Coma [Recovered/Resolved]
  - Respiratory failure [Recovered/Resolved]
  - Brain stem haemorrhage [Unknown]
